FAERS Safety Report 8606443-4 (Version None)
Quarter: 2012Q3

REPORT INFORMATION
  Report Type: 
  Country: None (occurrence: None)
  Receive Date: 20120820
  Receipt Date: 20120814
  Transmission Date: 20120928
  Serious: Yes (Other)
  Sender: FDA-Public Use
  Company Number: US-PFIZER INC-2012198893

PATIENT

DRUGS (2)
  1. SUTENT [Suspect]
     Indication: NEUROENDOCRINE CARCINOMA METASTATIC
     Dosage: UNK
  2. AFINITOR [Suspect]
     Indication: NEUROENDOCRINE CARCINOMA METASTATIC
     Dosage: UNK

REACTIONS (3)
  - RENAL FAILURE [None]
  - DISEASE PROGRESSION [None]
  - NEUROENDOCRINE CARCINOMA METASTATIC [None]
